FAERS Safety Report 8018758-1 (Version None)
Quarter: 2012Q1

REPORT INFORMATION
  Report Type: 
  Country: None (occurrence: None)
  Receive Date: 20120103
  Receipt Date: 20120103
  Transmission Date: 20120608
  Serious: Yes (Death, Life-Threatening, Hospitalization, Disabling, Congenital Anomaly, Other)
  Sender: FDA-Public Use
  Company Number: None

PATIENT
  Age: 42 Year
  Sex: Female
  Weight: 79.378 kg

DRUGS (4)
  1. TRIAVIL 2MG- 25MG [Concomitant]
     Route: 048
  2. TRAZODONE HCL [Concomitant]
  3. IC PERPHENAZINE-AMITRIPTILINE [Concomitant]
     Indication: DEPRESSION
     Dosage: 1 OR 2 TABLETS
     Route: 048
  4. TRAZODONE HCL [Suspect]
     Indication: DEPRESSION
     Dosage: 1/3 TI 1 TABLET
     Route: 048

REACTIONS (14)
  - CHEST PAIN [None]
  - TACHYPHRENIA [None]
  - PRURITUS [None]
  - HYPERHIDROSIS [None]
  - MANIA [None]
  - ENERGY INCREASED [None]
  - INSOMNIA [None]
  - SPEECH DISORDER [None]
  - HYPOAESTHESIA [None]
  - PAIN IN EXTREMITY [None]
  - PARAESTHESIA [None]
  - OEDEMA PERIPHERAL [None]
  - RASH [None]
  - CRYING [None]
